FAERS Safety Report 18567730 (Version 2)
Quarter: 2021Q3

REPORT INFORMATION
  Report Type: Spontaneous
  Country: FR (occurrence: FR)
  Receive Date: 20201202
  Receipt Date: 20210708
  Transmission Date: 20211014
  Serious: Yes (Other)
  Sender: FDA-Public Use
  Company Number: FR-TEVA-2020-FR-1853904

PATIENT
  Age: 67 Year
  Sex: Female
  Weight: 93 kg

DRUGS (13)
  1. BISOPROLOL (HEMIFUMARATE DE) [Concomitant]
     Active Substance: BISOPROLOL FUMARATE
  2. EZETIMIBE. [Concomitant]
     Active Substance: EZETIMIBE
  3. KARDEGIC [Concomitant]
     Active Substance: ASPIRIN DL-LYSINE
  4. IVABRADINE [Concomitant]
     Active Substance: IVABRADINE
  5. PARACETAMOL [Concomitant]
     Active Substance: ACETAMINOPHEN
  6. JANUMET [Concomitant]
     Active Substance: METFORMIN HYDROCHLORIDE\SITAGLIPTIN PHOSPHATE
  7. LYSANXIA 10 MG, COMPRIME [Concomitant]
     Active Substance: PRAZEPAM
  8. RAMIPRIL. [Concomitant]
     Active Substance: RAMIPRIL
  9. ESOMEPRAZOLE. [Concomitant]
     Active Substance: ESOMEPRAZOLE MAGNESIUM
  10. TARDYFERON [Concomitant]
     Active Substance: FERROUS SULFATE
  11. RISPERDAL [Concomitant]
     Active Substance: RISPERIDONE
  12. SIMVASTATINE [Suspect]
     Active Substance: SIMVASTATIN
     Indication: CARDIOVASCULAR EVENT PROPHYLAXIS
     Dosage: 20 MG
     Route: 048
     Dates: end: 20200529
  13. AMLODIPINE [Concomitant]
     Active Substance: AMLODIPINE BESYLATE

REACTIONS (1)
  - Immune-mediated myositis [Not Recovered/Not Resolved]

NARRATIVE: CASE EVENT DATE: 20200528
